FAERS Safety Report 13448293 (Version 1)
Quarter: 2017Q2

REPORT INFORMATION
  Report Type: Spontaneous
  Country: US (occurrence: US)
  Receive Date: 20170417
  Receipt Date: 20170417
  Transmission Date: 20170830
  Serious: Yes (Other)
  Sender: FDA-Public Use
  Company Number: US-ELI_LILLY_AND_COMPANY-US201704003141

PATIENT
  Sex: Female

DRUGS (1)
  1. HUMALOG KWIKPEN [Suspect]
     Active Substance: INSULIN LISPRO
     Indication: PRODUCT USED FOR UNKNOWN INDICATION
     Dosage: 15 U, BID
     Route: 065
     Dates: start: 201703

REACTIONS (3)
  - Dyspnoea [Unknown]
  - Drug dose omission [Unknown]
  - Heart rate increased [Unknown]

NARRATIVE: CASE EVENT DATE: 20170407
